FAERS Safety Report 7709248-1 (Version None)
Quarter: 2011Q3

REPORT INFORMATION
  Report Type: 
  Country: None (occurrence: None)
  Receive Date: 20110825
  Receipt Date: 20110819
  Transmission Date: 20111222
  Serious: Yes (Hospitalization)
  Sender: FDA-Public Use
  Company Number: US-B.I. PHARMACEUTICALS,INC./RIDGEFIELD-2011-BP-20397BP

PATIENT
  Sex: Male

DRUGS (10)
  1. DILTIAZEM [Concomitant]
     Indication: HYPERTENSION
  2. MULTAQ [Concomitant]
     Indication: ATRIAL FIBRILLATION
  3. PRADAXA [Suspect]
     Indication: ATRIAL FIBRILLATION
     Dosage: 300 MG
     Route: 048
     Dates: start: 20110401, end: 20110401
  4. COENZYME Q10 [Concomitant]
     Indication: MEDICAL DIET
  5. MAXZIDE [Concomitant]
     Indication: HYPERTENSION
  6. TOPROL-XL [Concomitant]
     Indication: HYPERTENSION
  7. PRIMIDONE [Concomitant]
     Indication: TREMOR
  8. FLUVASTATIN [Concomitant]
     Indication: BLOOD CHOLESTEROL INCREASED
  9. FOLIC ACID [Concomitant]
     Indication: VITAMIN SUPPLEMENTATION
  10. PRADAXA [Suspect]
     Dosage: 75 MG
     Route: 048
     Dates: start: 20110801, end: 20110801

REACTIONS (1)
  - BLOOD URINE PRESENT [None]
